FAERS Safety Report 7939078-7 (Version None)
Quarter: 2011Q4

REPORT INFORMATION
  Report Type: 
  Country: None (occurrence: None)
  Receive Date: 20111124
  Receipt Date: 20111117
  Transmission Date: 20120403
  Serious: Yes (Other)
  Sender: FDA-Public Use
  Company Number: DE-PFIZER INC-2011281861

PATIENT
  Age: 73 Year
  Sex: Female

DRUGS (1)
  1. ZYVOX [Suspect]
     Indication: GRAM STAIN POSITIVE
     Dosage: TWICE DAILY

REACTIONS (2)
  - CANDIDIASIS [None]
  - MEDICATION ERROR [None]
